FAERS Safety Report 17326666 (Version 1)
Quarter: 2020Q1

REPORT INFORMATION
  Report Type: Spontaneous
  Country: NL (occurrence: NL)
  Receive Date: 20200127
  Receipt Date: 20200127
  Transmission Date: 20200409
  Serious: Yes (Other)
  Sender: FDA-Public Use
  Company Number: NL-PFIZER INC-2020031642

PATIENT
  Age: 54 Year
  Weight: 73 kg

DRUGS (3)
  1. FLUCONAZOLE. [Suspect]
     Active Substance: FLUCONAZOLE
     Indication: DIARRHOEA
     Dosage: 200 MG, WEEKLY
  2. FLUCONAZOLE. [Suspect]
     Active Substance: FLUCONAZOLE
     Indication: GASTROINTESTINAL DISORDER
     Dosage: 50 MG (PER 1.5 WEEK)
     Route: 065
  3. FLUCONAZOLE. [Suspect]
     Active Substance: FLUCONAZOLE
     Indication: GASTROINTESTINAL INFLAMMATION
     Dosage: 200 MG, QD (AFTER 7 DAYS)
     Route: 065
     Dates: start: 201812

REACTIONS (6)
  - Lyme disease [Unknown]
  - Bacterial infection [Not Recovered/Not Resolved]
  - Rhinorrhoea [Unknown]
  - Tendon disorder [Not Recovered/Not Resolved]
  - Musculoskeletal discomfort [Unknown]
  - Nasopharyngitis [Unknown]

NARRATIVE: CASE EVENT DATE: 201902
